FAERS Safety Report 14801387 (Version 1)
Quarter: 2018Q2

REPORT INFORMATION
  Report Type: Spontaneous
  Country: GB (occurrence: GB)
  Receive Date: 20180424
  Receipt Date: 20180424
  Transmission Date: 20180711
  Serious: Yes (Life-Threatening, Other)
  Sender: FDA-Public Use
  Company Number: GB-CANTON LABORATORIES, LLC-2046392

PATIENT
  Age: 64 Year
  Sex: Female
  Weight: 79 kg

DRUGS (11)
  1. CANESTEN [Concomitant]
     Active Substance: CLOTRIMAZOLE
     Route: 065
     Dates: start: 20180213
  2. LEVOTHYROXINE SODIUM. [Concomitant]
     Active Substance: LEVOTHYROXINE SODIUM
     Route: 065
     Dates: start: 20171229
  3. LANSOPRAZOLE. [Concomitant]
     Active Substance: LANSOPRAZOLE
     Route: 065
     Dates: start: 20171229
  4. NAPROSYN [Suspect]
     Active Substance: NAPROXEN
     Indication: DYSGEUSIA
     Route: 048
  5. BACLOFEN. [Concomitant]
     Active Substance: BACLOFEN
     Route: 065
     Dates: start: 20171228
  6. CO-DYDRAMOL [Concomitant]
     Active Substance: ACETAMINOPHEN\DIHYDROCODEINE
     Route: 065
     Dates: start: 20180226, end: 20180322
  7. BETNOVATE [Concomitant]
     Active Substance: BETAMETHASONE
     Route: 065
     Dates: start: 20171228
  8. VENLAFAXINE [Concomitant]
     Active Substance: VENLAFAXINE HYDROCHLORIDE
     Route: 065
     Dates: start: 20171229
  9. TEGRETOL [Concomitant]
     Active Substance: CARBAMAZEPINE
     Route: 065
     Dates: start: 20171107
  10. BISOPROLOL FUMARATE. [Concomitant]
     Active Substance: BISOPROLOL FUMARATE
     Route: 065
     Dates: start: 20180227
  11. DAKTARIN [Concomitant]
     Active Substance: MICONAZOLE NITRATE
     Route: 050
     Dates: start: 20171228

REACTIONS (8)
  - Paraesthesia [Unknown]
  - Vomiting [Unknown]
  - Rash [Recovering/Resolving]
  - Urticaria [Unknown]
  - Swollen tongue [Unknown]
  - Muscle tightness [Unknown]
  - Lip swelling [Unknown]
  - Hypersensitivity [Recovered/Resolved]

NARRATIVE: CASE EVENT DATE: 20171119
